FAERS Safety Report 6494090-2 (Version None)
Quarter: 2009Q4

REPORT INFORMATION
  Report Type: 
  Country: None (occurrence: None)
  Receive Date: 20091214
  Receipt Date: 20081226
  Transmission Date: 20100525
  Serious: No
  Sender: FDA-Public Use
  Company Number: US-BRISTOL-MYERS SQUIBB COMPANY-14456511

PATIENT
  Age: 53 Year
  Sex: Male

DRUGS (2)
  1. ABILIFY [Suspect]
     Indication: BIPOLAR I DISORDER
     Dates: start: 20050401, end: 20080101
  2. TRAZODONE HCL [Concomitant]

REACTIONS (1)
  - RESTLESS LEGS SYNDROME [None]
